FAERS Safety Report 6159372-2 (Version None)
Quarter: 2009Q2

REPORT INFORMATION
  Report Type: 
  Country: None (occurrence: None)
  Receive Date: 20090417
  Receipt Date: 20090408
  Transmission Date: 20091009
  Serious: Yes (Hospitalization)
  Sender: FDA-Public Use
  Company Number: JP-ELI_LILLY_AND_COMPANY-JP200903004307

PATIENT
  Age: 84 Year
  Sex: Female

DRUGS (4)
  1. ZYPREXA [Suspect]
     Indication: SCHIZOPHRENIA
     Dosage: 5 MG, DAILY (1/D)
     Route: 048
  2. SERMION [Concomitant]
     Route: 048
  3. TOLEDOMIN [Concomitant]
     Route: 048
  4. NEUROVITAN [Concomitant]
     Route: 048

REACTIONS (2)
  - HOSPITALISATION [None]
  - HYPOGLYCAEMIA [None]
